FAERS Safety Report 5943156-1 (Version None)
Quarter: 2008Q4

REPORT INFORMATION
  Report Type: 
  Country: None (occurrence: None)
  Receive Date: 20081106
  Receipt Date: 20081029
  Transmission Date: 20090506
  Serious: Yes (Death)
  Sender: FDA-Public Use
  Company Number: A0744087A

PATIENT
  Sex: Female
  Weight: 0.3 kg

DRUGS (3)
  1. EPZICOM [Suspect]
     Indication: HIV INFECTION
     Dosage: 1TAB PER DAY
  2. REYATAZ [Concomitant]
     Indication: HIV INFECTION
     Dosage: 300MG PER DAY
  3. NORVIR [Concomitant]
     Indication: HIV INFECTION
     Dosage: 100MG PER DAY

REACTIONS (3)
  - DEATH NEONATAL [None]
  - DRUG EXPOSURE DURING PREGNANCY [None]
  - PREMATURE BABY [None]
